FAERS Safety Report 8596449-6 (Version None)
Quarter: 2012Q3

REPORT INFORMATION
  Report Type: 
  Country: None (occurrence: None)
  Receive Date: 20120815
  Receipt Date: 20120810
  Transmission Date: 20120928
  Serious: Yes (Hospitalization, Other)
  Sender: FDA-Public Use
  Company Number: PL-ROXANE LABORATORIES, INC.-2012-RO-01688RO

PATIENT
  Age: 59 Year
  Sex: Male

DRUGS (4)
  1. LITHIUM CARBONATE [Suspect]
     Indication: BIPOLAR DISORDER
  2. ARIPIPRAZOLE [Suspect]
     Indication: BIPOLAR DISORDER
     Dosage: 15 MG
  3. VALPROIC ACID [Suspect]
     Indication: BIPOLAR DISORDER
  4. OLANZAPINE [Suspect]
     Indication: BIPOLAR DISORDER

REACTIONS (3)
  - NEUROLEPTIC MALIGNANT SYNDROME [None]
  - DRUG INEFFECTIVE [None]
  - TOXICITY TO VARIOUS AGENTS [None]
